FAERS Safety Report 5010606-7 (Version None)
Quarter: 2006Q2

REPORT INFORMATION
  Report Type: 
  Country: None (occurrence: None)
  Receive Date: 20060525
  Receipt Date: 20060224
  Transmission Date: 20061013
  Serious: Yes (Hospitalization, Other)
  Sender: FDA-Public Use
  Company Number: PHRM2006FR00927

PATIENT
  Age: 43 Year
  Sex: Male

DRUGS (1)
  1. FORADIL [Suspect]
     Indication: ASTHMA

REACTIONS (3)
  - CYTOLYTIC HEPATITIS [None]
  - GASTROINTESTINAL DISORDER [None]
  - TRANSAMINASES INCREASED [None]
